FAERS Safety Report 25706306 (Version 1)
Quarter: 2025Q3

REPORT INFORMATION
  Report Type: Spontaneous
  Country: GB (occurrence: GB)
  Receive Date: 20250820
  Receipt Date: 20250820
  Transmission Date: 20251020
  Serious: Yes (Death, Other)
  Sender: MERZ
  Company Number: GB-MERZ PHARMACEUTICALS LLC-ACO_178732_2025

PATIENT

DRUGS (1)
  1. DALFAMPRIDINE [Suspect]
     Active Substance: DALFAMPRIDINE
     Indication: Multiple sclerosis
     Dosage: 1 DOSAGE FORM (10 MILLIGRAM), BID
     Route: 048
     Dates: start: 202210, end: 202508

REACTIONS (1)
  - Death [Fatal]
